FAERS Safety Report 24549782 (Version 1)
Quarter: 2024Q4

REPORT INFORMATION
  Report Type: Spontaneous
  Country: US (occurrence: None)
  Receive Date: 20241024
  Receipt Date: 20241024
  Transmission Date: 20250114
  Serious: Yes (Death)
  Sender: Public
  Company Number: None

PATIENT
  Age: 79 Year
  Sex: Male

DRUGS (5)
  1. PIRFENIDONE [Suspect]
     Active Substance: PIRFENIDONE
     Indication: Idiopathic pulmonary fibrosis
     Dosage: FREQUENCY : TWICE A DAY;?
     Route: 048
     Dates: start: 20201202, end: 20230924
  2. FAMOTIDINE [Concomitant]
  3. LISINOPRIL [Concomitant]
  4. ATORVASTATIN [Concomitant]
  5. MAGNESIUM OXIDE [Concomitant]

REACTIONS (4)
  - Syncope [None]
  - Sepsis [None]
  - Pneumonitis [None]
  - Hospice care [None]

NARRATIVE: CASE EVENT DATE: 20240924
